FAERS Safety Report 22314906 (Version 1)
Quarter: 2023Q2

REPORT INFORMATION
  Report Type: Spontaneous
  Country: US (occurrence: US)
  Receive Date: 20230512
  Receipt Date: 20230512
  Transmission Date: 20230722
  Serious: Yes (Hospitalization)
  Sender: FDA-Public Use
  Company Number: US-MYLANLABS-2023M1049333

PATIENT
  Age: 9 Decade
  Sex: Female

DRUGS (3)
  1. CARBOPLATIN [Suspect]
     Active Substance: CARBOPLATIN
     Indication: Squamous cell carcinoma of the oral cavity
     Dosage: 208 MILLIGRAM, CYCLE
     Route: 065
  2. PEMBROLIZUMAB [Suspect]
     Active Substance: PEMBROLIZUMAB
     Indication: Squamous cell carcinoma of the oral cavity
     Dosage: 200 MILLIGRAM, CYCLE
     Route: 065
  3. FLUOROURACIL [Concomitant]
     Active Substance: FLUOROURACIL
     Indication: Squamous cell carcinoma of the oral cavity
     Dosage: 3936 MILLIGRAM, CYCLE
     Route: 065

REACTIONS (5)
  - Autonomic nervous system imbalance [Recovered/Resolved]
  - Presyncope [Recovered/Resolved]
  - Diastolic dysfunction [Unknown]
  - Aortic valve incompetence [Unknown]
  - Atrioventricular block complete [Unknown]
